FAERS Safety Report 17680280 (Version 1)
Quarter: 2020Q2

REPORT INFORMATION
  Report Type: Spontaneous
  Country: KR (occurrence: KR)
  Receive Date: 20200417
  Receipt Date: 20200417
  Transmission Date: 20200714
  Serious: Yes (Other)
  Sender: FDA-Public Use
  Company Number: NVSC2020KR102838

PATIENT
  Age: 53 Year
  Sex: Female

DRUGS (1)
  1. CYCLOSPORINE. [Suspect]
     Active Substance: CYCLOSPORINE
     Indication: UVEITIS
     Dosage: UNK
     Route: 065

REACTIONS (5)
  - IVth nerve paralysis [Unknown]
  - Vomiting [Unknown]
  - Diplopia [Unknown]
  - Nausea [Unknown]
  - Diffuse large B-cell lymphoma [Unknown]
